FAERS Safety Report 6119928-X (Version None)
Quarter: 2009Q1

REPORT INFORMATION
  Report Type: 
  Country: None (occurrence: None)
  Receive Date: 20090316
  Receipt Date: 20090304
  Transmission Date: 20090719
  Serious: Yes (Other)
  Sender: FDA-Public Use
  Company Number: US-ROCHE-621264

PATIENT
  Age: 31 Year
  Sex: Female

DRUGS (2)
  1. CAPECITABINE [Suspect]
     Indication: DRUG USE FOR UNKNOWN INDICATION
     Route: 065
  2. BEVACIZUMAB [Suspect]
     Dosage: UNK
     Route: 065
     Dates: start: 20090302

REACTIONS (1)
  - DISSEMINATED INTRAVASCULAR COAGULATION [None]
